FAERS Safety Report 25127029 (Version 1)
Quarter: 2025Q1

REPORT INFORMATION
  Report Type: Spontaneous
  Country: JP (occurrence: JP)
  Receive Date: 20250327
  Receipt Date: 20250327
  Transmission Date: 20250409
  Serious: Yes (Other)
  Sender: MERCK SHARP & DOHME LLC
  Company Number: JP-009507513-2267501

PATIENT
  Age: 57 Year
  Sex: Female

DRUGS (3)
  1. KEYTRUDA [Suspect]
     Active Substance: PEMBROLIZUMAB
     Indication: Cervix carcinoma
     Route: 041
     Dates: start: 20250220
  2. CARBOPLATIN [Suspect]
     Active Substance: CARBOPLATIN
     Route: 041
     Dates: start: 20250220
  3. PACLITAXEL [Suspect]
     Active Substance: PACLITAXEL
     Route: 041
     Dates: start: 20250220

REACTIONS (3)
  - Oesophagitis ulcerative [Recovered/Resolved]
  - Ulcerative duodenitis [Recovered/Resolved]
  - Ulcerative gastritis [Recovered/Resolved]

NARRATIVE: CASE EVENT DATE: 20250223
